FAERS Safety Report 8346444-7 (Version None)
Quarter: 2012Q2

REPORT INFORMATION
  Report Type: 
  Country: None (occurrence: None)
  Receive Date: 20120509
  Receipt Date: 20120503
  Transmission Date: 20120825
  Serious: Yes (Death, Hospitalization, Other)
  Sender: FDA-Public Use
  Company Number: SE-PFIZER INC-2012111912

PATIENT
  Age: 70 Year
  Sex: Male

DRUGS (5)
  1. CORDARONE [Suspect]
     Indication: ATRIAL FIBRILLATION
     Dosage: 200MG, DAILY
     Route: 048
     Dates: start: 20120119
  2. LUCENTIS [Concomitant]
     Indication: MACULAR DEGENERATION
     Dosage: UNK
     Dates: start: 20071101, end: 20111101
  3. WARFARIN SODIUM [Concomitant]
     Dosage: UNK
  4. ENALAPRIL [Concomitant]
     Dosage: UNK
  5. BISOPROLOL [Concomitant]
     Dosage: UNK

REACTIONS (2)
  - ATRIAL FIBRILLATION [None]
  - CARDIAC ARREST [None]
